FAERS Safety Report 13792989 (Version 1)
Quarter: 2017Q3

REPORT INFORMATION
  Report Type: Spontaneous
  Country: US (occurrence: US)
  Receive Date: 20170726
  Receipt Date: 20170726
  Transmission Date: 20171127
  Serious: Yes (Hospitalization)
  Sender: FDA-Public Use
  Company Number: US-PFIZER INC-2017322440

PATIENT
  Age: 82 Year
  Sex: Female

DRUGS (1)
  1. DEPO-MEDROL [Suspect]
     Active Substance: METHYLPREDNISOLONE ACETATE
     Indication: SWELLING
     Dosage: INJECTION

REACTIONS (2)
  - Cognitive disorder [Recovering/Resolving]
  - Encephalitis [Unknown]

NARRATIVE: CASE EVENT DATE: 201609
